FAERS Safety Report 16031450 (Version 2)
Quarter: 2019Q1

REPORT INFORMATION
  Report Type: Spontaneous
  Country: JP (occurrence: JP)
  Receive Date: 20190304
  Receipt Date: 20190322
  Transmission Date: 20190418
  Serious: Yes (Death)
  Sender: FDA-Public Use
  Company Number: JP-JNJFOC-20190301951

PATIENT
  Age: 56 Year
  Sex: Female
  Weight: 40 kg

DRUGS (3)
  1. XEPLION [Suspect]
     Active Substance: PALIPERIDONE PALMITATE
     Indication: SCHIZOPHRENIA
     Dosage: LEFT UPPER ARM
     Route: 030
     Dates: start: 20190201
  2. XEPLION [Suspect]
     Active Substance: PALIPERIDONE PALMITATE
     Indication: SCHIZOPHRENIA
     Dosage: RIGHT UPPER ARM
     Route: 030
     Dates: start: 20190125, end: 20190125
  3. REXULTI [Concomitant]
     Active Substance: BREXPIPRAZOLE
     Indication: SCHIZOPHRENIA
     Route: 048
     Dates: start: 20180524, end: 20190131

REACTIONS (1)
  - Death [Fatal]

NARRATIVE: CASE EVENT DATE: 201902
